FAERS Safety Report 8618636-0 (Version None)
Quarter: 2012Q3

REPORT INFORMATION
  Report Type: 
  Country: None (occurrence: None)
  Receive Date: 20120814
  Receipt Date: 20120814
  Transmission Date: 20120928
  Serious: Yes (Other)
  Sender: FDA-Public Use
  Company Number: None

PATIENT
  Age: 28 Year
  Sex: Female
  Weight: 153 kg

DRUGS (2)
  1. LOESTRIN FE 1/20 [Concomitant]
  2. LO LOESTRIN FE [Suspect]

REACTIONS (3)
  - HAEMORRHAGE [None]
  - ANAEMIA [None]
  - FATIGUE [None]
